FAERS Safety Report 20478002 (Version 1)
Quarter: 2022Q1

REPORT INFORMATION
  Report Type: Spontaneous
  Country: GB (occurrence: GB)
  Receive Date: 20220216
  Receipt Date: 20220216
  Transmission Date: 20220423
  Serious: Yes (Other)
  Sender: FDA-Public Use
  Company Number: None

PATIENT
  Age: 55 Year
  Sex: Female
  Weight: 74.39 kg

DRUGS (1)
  1. MIRTAZAPINE [Suspect]
     Active Substance: MIRTAZAPINE
     Indication: Anxiety
     Dosage: 15 MG
     Route: 048
     Dates: start: 20180414

REACTIONS (3)
  - Fear [Recovering/Resolving]
  - Restless legs syndrome [Recovered/Resolved with Sequelae]
  - Tinnitus [Not Recovered/Not Resolved]

NARRATIVE: CASE EVENT DATE: 20210913
